FAERS Safety Report 19959595 (Version 2)
Quarter: 2022Q4

REPORT INFORMATION
  Report Type: Spontaneous
  Country: US (occurrence: US)
  Receive Date: 20211015
  Receipt Date: 20221209
  Transmission Date: 20230113
  Serious: No
  Sender: FDA-Public Use
  Company Number: US-SA-SAC20211013000153

PATIENT
  Sex: Male

DRUGS (3)
  1. DUPIXENT [Suspect]
     Active Substance: DUPILUMAB
     Indication: Dermatitis atopic
     Dosage: UNK
     Dates: start: 2021
  2. DUPIXENT [Suspect]
     Active Substance: DUPILUMAB
     Dosage: UNK
     Route: 058
     Dates: start: 20221115, end: 20221115
  3. DUPIXENT [Suspect]
     Active Substance: DUPILUMAB
     Dosage: UNK, Q15D
     Route: 058
     Dates: start: 202211

REACTIONS (3)
  - Lacrimation increased [Not Recovered/Not Resolved]
  - Eye pruritus [Not Recovered/Not Resolved]
  - Condition aggravated [Not Recovered/Not Resolved]

NARRATIVE: CASE EVENT DATE: 20210101
